FAERS Safety Report 8271027-7 (Version None)
Quarter: 2012Q2

REPORT INFORMATION
  Report Type: 
  Country: None (occurrence: None)
  Receive Date: 20120410
  Receipt Date: 20120406
  Transmission Date: 20120825
  Serious: No
  Sender: FDA-Public Use
  Company Number: US-B.I. PHARMACEUTICALS,INC./RIDGEFIELD-2012-BP-06551BP

PATIENT
  Sex: Female

DRUGS (2)
  1. METFORMIN HCL [Concomitant]
  2. TRADJENTA [Suspect]
     Indication: TYPE 2 DIABETES MELLITUS

REACTIONS (1)
  - GLYCOSYLATED HAEMOGLOBIN INCREASED [None]
